FAERS Safety Report 12454279 (Version 1)
Quarter: 2016Q2

REPORT INFORMATION
  Report Type: Spontaneous
  Country: TR (occurrence: TR)
  Receive Date: 20160610
  Receipt Date: 20160610
  Transmission Date: 20160815
  Serious: Yes (Other)
  Sender: FDA-Public Use
  Company Number: TR-ROCHE-1772804

PATIENT
  Age: 45 Year
  Sex: Female

DRUGS (2)
  1. OMALIZUMAB [Suspect]
     Active Substance: OMALIZUMAB
     Dosage: 300 OT
     Route: 058
     Dates: start: 20150617
  2. OMALIZUMAB [Suspect]
     Active Substance: OMALIZUMAB
     Indication: URTICARIA CHRONIC
     Dosage: 300 OT
     Route: 058
     Dates: start: 20141212

REACTIONS (4)
  - Papilloma viral infection [Recovered/Resolved]
  - Pigmentation disorder [Not Recovered/Not Resolved]
  - Skin disorder [Recovered/Resolved]
  - Seborrhoeic keratosis [Not Recovered/Not Resolved]

NARRATIVE: CASE EVENT DATE: 20150721
